FAERS Safety Report 4588991-X (Version None)
Quarter: 2005Q1

REPORT INFORMATION
  Report Type: 
  Country: None (occurrence: None)
  Receive Date: 20050216
  Receipt Date: 20050201
  Transmission Date: 20050727
  Serious: Yes (Other)
  Sender: FDA-Public Use
  Company Number: USA041285525

PATIENT
  Sex: Female

DRUGS (5)
  1. ALIMTA [Suspect]
     Indication: LUNG NEOPLASM MALIGNANT
     Dosage: 500 MG/M2
     Dates: start: 20041018, end: 20041129
  2. PERCOCET [Concomitant]
  3. VITAMIN B-12 [Concomitant]
  4. FOLIC ACID [Concomitant]
  5. CORTICOSTEROIDS NOS [Concomitant]

REACTIONS (6)
  - ACTIVITIES OF DAILY LIVING IMPAIRED [None]
  - BONE PAIN [None]
  - ERYTHEMA [None]
  - MOBILITY DECREASED [None]
  - NEUROPATHY [None]
  - OEDEMA PERIPHERAL [None]
